FAERS Safety Report 16723985 (Version 1)
Quarter: 2019Q3

REPORT INFORMATION
  Report Type: Spontaneous
  Country: US (occurrence: US)
  Receive Date: 20190703
  Receipt Date: 20190703
  Transmission Date: 20191005
  Serious: Yes (Hospitalization)
  Sender: FDA-Public Use
  Company Number: None

PATIENT
  Sex: Female

DRUGS (10)
  1. MONTELUKAST [Concomitant]
     Active Substance: MONTELUKAST SODIUM
  2. ENBREL [Suspect]
     Active Substance: ETANERCEPT
     Indication: RHEUMATOID ARTHRITIS
     Route: 058
     Dates: start: 20190416
  3. VICTOZA [Concomitant]
     Active Substance: LIRAGLUTIDE
  4. BISOPROL FUM [Concomitant]
     Active Substance: BISOPROLOL FUMARATE
  5. ATORVASTATIN [Concomitant]
     Active Substance: ATORVASTATIN
  6. METFORMIN [Concomitant]
     Active Substance: METFORMIN HYDROCHLORIDE
  7. BACLOFEN. [Concomitant]
     Active Substance: BACLOFEN
  8. OMEPRAZOLE. [Concomitant]
     Active Substance: OMEPRAZOLE
  9. PROAIR HFA [Concomitant]
     Active Substance: ALBUTEROL SULFATE
  10. XOPENEX [Concomitant]
     Active Substance: LEVALBUTEROL HYDROCHLORIDE

REACTIONS (1)
  - Spinal operation [None]
